FAERS Safety Report 17553414 (Version 1)
Quarter: 2020Q1

REPORT INFORMATION
  Report Type: Spontaneous
  Country: US (occurrence: US)
  Receive Date: 20200317
  Receipt Date: 20200317
  Transmission Date: 20200409
  Serious: No
  Sender: FDA-Public Use
  Company Number: US-AMAG PHARMACEUTICALS, INC.-AMAG202000984

PATIENT
  Sex: Female

DRUGS (2)
  1. INTRAROSA [Suspect]
     Active Substance: PRASTERONE
     Indication: DYSPAREUNIA
  2. INTRAROSA [Suspect]
     Active Substance: PRASTERONE
     Indication: LIBIDO DECREASED
     Route: 067

REACTIONS (1)
  - Drug effective for unapproved indication [Unknown]
